FAERS Safety Report 23505114 (Version 1)
Quarter: 2024Q1

REPORT INFORMATION
  Report Type: Spontaneous
  Country: US (occurrence: US)
  Receive Date: 20240209
  Receipt Date: 20240209
  Transmission Date: 20240409
  Serious: No
  Sender: FDA-Public Use
  Company Number: US-ELI_LILLY_AND_COMPANY-US202402000834

PATIENT
  Age: 28 Year
  Sex: Female

DRUGS (16)
  1. MOUNJARO [Suspect]
     Active Substance: TIRZEPATIDE
     Indication: Asthma
     Dosage: 2.5 MG, UNKNOWN
     Route: 058
     Dates: start: 202303
  2. MOUNJARO [Suspect]
     Active Substance: TIRZEPATIDE
     Indication: Asthma
     Dosage: 2.5 MG, UNKNOWN
     Route: 058
     Dates: start: 202303
  3. MOUNJARO [Suspect]
     Active Substance: TIRZEPATIDE
     Indication: Asthma
     Dosage: 2.5 MG, UNKNOWN
     Route: 058
     Dates: start: 202303
  4. MOUNJARO [Suspect]
     Active Substance: TIRZEPATIDE
     Indication: Asthma
     Dosage: 2.5 MG, UNKNOWN
     Route: 058
     Dates: start: 202303
  5. MOUNJARO [Suspect]
     Active Substance: TIRZEPATIDE
     Indication: Cardiomegaly
  6. MOUNJARO [Suspect]
     Active Substance: TIRZEPATIDE
     Indication: Cardiomegaly
  7. MOUNJARO [Suspect]
     Active Substance: TIRZEPATIDE
     Indication: Cardiomegaly
  8. MOUNJARO [Suspect]
     Active Substance: TIRZEPATIDE
     Indication: Cardiomegaly
  9. MOUNJARO [Suspect]
     Active Substance: TIRZEPATIDE
     Indication: Asthma
     Dosage: 12.5 MG, UNKNOWN
     Route: 058
  10. MOUNJARO [Suspect]
     Active Substance: TIRZEPATIDE
     Indication: Asthma
     Dosage: 12.5 MG, UNKNOWN
     Route: 058
  11. MOUNJARO [Suspect]
     Active Substance: TIRZEPATIDE
     Indication: Asthma
     Dosage: 12.5 MG, UNKNOWN
     Route: 058
  12. MOUNJARO [Suspect]
     Active Substance: TIRZEPATIDE
     Indication: Asthma
     Dosage: 12.5 MG, UNKNOWN
     Route: 058
  13. MOUNJARO [Suspect]
     Active Substance: TIRZEPATIDE
     Indication: Cardiomegaly
     Dosage: 12.5 MG, UNKNOWN
     Route: 058
  14. MOUNJARO [Suspect]
     Active Substance: TIRZEPATIDE
     Indication: Cardiomegaly
     Dosage: 12.5 MG, UNKNOWN
     Route: 058
  15. MOUNJARO [Suspect]
     Active Substance: TIRZEPATIDE
     Indication: Cardiomegaly
     Dosage: 12.5 MG, UNKNOWN
     Route: 058
  16. MOUNJARO [Suspect]
     Active Substance: TIRZEPATIDE
     Indication: Cardiomegaly
     Dosage: 12.5 MG, UNKNOWN
     Route: 058

REACTIONS (3)
  - Nausea [Recovered/Resolved]
  - Off label use [Unknown]
  - Incorrect dose administered [Unknown]
